FAERS Safety Report 6724765-9 (Version None)
Quarter: 2010Q2

REPORT INFORMATION
  Report Type: 
  Country: None (occurrence: None)
  Receive Date: 20100511
  Receipt Date: 20100503
  Transmission Date: 20101027
  Serious: Yes (Hospitalization)
  Sender: FDA-Public Use
  Company Number: 2010SP021462

PATIENT
  Age: 48 Year
  Sex: Female

DRUGS (11)
  1. PEG-INTRON [Suspect]
     Indication: HEPATITIS C
     Dosage: 150 MCG;QW;SC
     Route: 058
     Dates: start: 20100108, end: 20100325
  2. RIBAVIRIN [Suspect]
     Indication: HEPATITIS C
     Dosage: 600 MG;BID;PO
     Route: 048
     Dates: start: 20100108, end: 20100325
  3. ESTRATEST [Concomitant]
  4. PROMETRIUM [Concomitant]
  5. ULTRAM [Concomitant]
  6. FLUOXETINE [Concomitant]
  7. MOTRIN [Concomitant]
  8. PHENERGAN [Concomitant]
  9. IMITREX [Concomitant]
  10. ESTRADIOL [Concomitant]
  11. VERAMYST [Concomitant]

REACTIONS (14)
  - DECREASED APPETITE [None]
  - DEHYDRATION [None]
  - EAR INFECTION [None]
  - FEBRILE NEUTROPENIA [None]
  - HEADACHE [None]
  - IMMUNE SYSTEM DISORDER [None]
  - MICTURITION FREQUENCY DECREASED [None]
  - NAUSEA [None]
  - OROPHARYNGEAL PAIN [None]
  - PAIN [None]
  - PANCYTOPENIA [None]
  - SINUS DISORDER [None]
  - SPUTUM DISCOLOURED [None]
  - VOMITING [None]
